FAERS Safety Report 16207452 (Version 2)
Quarter: 2019Q2

REPORT INFORMATION
  Report Type: Spontaneous
  Country: US (occurrence: US)
  Receive Date: 20190417
  Receipt Date: 20190612
  Transmission Date: 20190711
  Serious: No
  Sender: FDA-Public Use
  Company Number: US-PFIZER INC-2019160292

PATIENT
  Age: 55 Year
  Sex: Female

DRUGS (1)
  1. GENOTROPIN MQ [Suspect]
     Active Substance: SOMATROPIN
     Indication: GROWTH HORMONE DEFICIENCY
     Dosage: 0.6 MG, DAILY
     Route: 058
     Dates: start: 2018

REACTIONS (1)
  - Sinusitis [Not Recovered/Not Resolved]
